FAERS Safety Report 8560342-5 (Version None)
Quarter: 2012Q3

REPORT INFORMATION
  Report Type: 
  Country: None (occurrence: None)
  Receive Date: 20120802
  Receipt Date: 20120724
  Transmission Date: 20120928
  Serious: Yes (Other)
  Sender: FDA-Public Use
  Company Number: JP-ELI_LILLY_AND_COMPANY-JP201206007517

PATIENT
  Age: 71 Year
  Sex: Female

DRUGS (4)
  1. FOLIC ACID [Concomitant]
  2. VITAMIN B-12 [Concomitant]
  3. ALIMTA [Suspect]
     Route: 042
  4. CARBOPLATIN [Concomitant]

REACTIONS (3)
  - BONE MARROW FAILURE [None]
  - ATRIAL FIBRILLATION [None]
  - CEREBELLAR INFARCTION [None]
